FAERS Safety Report 4692830-6 (Version None)
Quarter: 2005Q2

REPORT INFORMATION
  Report Type: 
  Country: None (occurrence: None)
  Receive Date: 20050617
  Receipt Date: 20040202
  Transmission Date: 20051028
  Serious: Yes (Other)
  Sender: FDA-Public Use
  Company Number: GB-ROCHE-357761

PATIENT
  Age: 34 Year
  Sex: Male
  Weight: 75.9 kg

DRUGS (6)
  1. PEG-INTERFERON ALFA 2A (RO 25-8310) [Suspect]
     Dosage: DOSE FORM REPORTED: VIAL / PRE-FILLED SYRINGE.
     Route: 058
     Dates: start: 20020619, end: 20021106
  2. PEG-INTERFERON ALFA 2A (RO 25-8310) [Suspect]
     Route: 058
     Dates: start: 20021123
  3. RIBAVIRIN [Suspect]
     Route: 048
     Dates: start: 20020619, end: 20021112
  4. RIBAVIRIN [Suspect]
     Route: 048
     Dates: start: 20021119
  5. PAROXETINE HCL [Concomitant]
     Dates: start: 20021029
  6. TEMAZEPAM [Concomitant]
     Dates: start: 20021020

REACTIONS (1)
  - FACIAL PALSY [None]
